FAERS Safety Report 21268298 (Version 1)
Quarter: 2022Q3

REPORT INFORMATION
  Report Type: Spontaneous
  Country: US (occurrence: US)
  Receive Date: 20220830
  Receipt Date: 20220830
  Transmission Date: 20221026
  Serious: Yes (Hospitalization)
  Sender: FDA-Public Use
  Company Number: US-UNITED THERAPEUTICS-UNT-2022-019099

PATIENT
  Age: 43 Year
  Sex: Female

DRUGS (2)
  1. REMODULIN [Suspect]
     Active Substance: TREPROSTINIL
     Indication: Pulmonary arterial hypertension
     Dosage: UNK, CONTINUING
     Route: 041
     Dates: start: 20140815
  2. REMODULIN [Suspect]
     Active Substance: TREPROSTINIL
     Dosage: 0.236 ?G/KG, CONTINUING
     Route: 041

REACTIONS (3)
  - Diarrhoea [Unknown]
  - Vomiting [Unknown]
  - Device dislocation [Unknown]

NARRATIVE: CASE EVENT DATE: 20220801
